FAERS Safety Report 15187554 (Version 1)
Quarter: 2018Q3

REPORT INFORMATION
  Report Type: Spontaneous
  Country: ES (occurrence: ES)
  Receive Date: 20180723
  Receipt Date: 20180723
  Transmission Date: 20181010
  Serious: Yes (Death, Other)
  Sender: FDA-Public Use
  Company Number: ES-ABBVIE-18K-144-2400665-00

PATIENT
  Age: 17 Year
  Sex: Female

DRUGS (1)
  1. VENCLYXTO [Suspect]
     Active Substance: VENETOCLAX
     Indication: NEUROBLASTOMA
     Route: 048
     Dates: start: 20180625, end: 20180630

REACTIONS (2)
  - Off label use [Unknown]
  - Neuroblastoma [Fatal]

NARRATIVE: CASE EVENT DATE: 201806
